FAERS Safety Report 25809347 (Version 1)
Quarter: 2025Q3

REPORT INFORMATION
  Report Type: Spontaneous
  Country: US (occurrence: US)
  Receive Date: 20250916
  Receipt Date: 20250916
  Transmission Date: 20251021
  Serious: No
  Sender: SANOFI AVENTIS
  Company Number: US-SA-2025SA274873

PATIENT
  Sex: Male
  Weight: 115.21 kg

DRUGS (3)
  1. DUPIXENT [Suspect]
     Active Substance: DUPILUMAB
     Indication: Dermatitis atopic
     Dosage: 2 ML, QOW
     Route: 058
     Dates: start: 2024
  2. FAMOTIDINE [Concomitant]
     Active Substance: FAMOTIDINE
  3. AFRIN [Concomitant]
     Active Substance: OXYMETAZOLINE HYDROCHLORIDE

REACTIONS (2)
  - Restless legs syndrome [Unknown]
  - Sleep disorder due to a general medical condition [Unknown]
